FAERS Safety Report 5003713-6 (Version None)
Quarter: 2006Q2

REPORT INFORMATION
  Report Type: 
  Country: None (occurrence: None)
  Receive Date: 20060516
  Receipt Date: 20060228
  Transmission Date: 20061013
  Serious: No
  Sender: FDA-Public Use
  Company Number: US-MERCK-0603USA00187

PATIENT
  Age: 49 Year
  Sex: Female
  Weight: 104 kg

DRUGS (3)
  1. VIOXX [Suspect]
     Indication: ARTHRITIS
     Route: 048
     Dates: start: 20001126, end: 20031015
  2. VIOXX [Suspect]
     Route: 048
     Dates: start: 20001126, end: 20031015
  3. ADVIL [Concomitant]
     Route: 065

REACTIONS (3)
  - HEADACHE [None]
  - OVERDOSE [None]
  - TRANSIENT ISCHAEMIC ATTACK [None]
